FAERS Safety Report 6824571-0 (Version None)
Quarter: 2010Q3

REPORT INFORMATION
  Report Type: 
  Country: None (occurrence: None)
  Receive Date: 20100708
  Receipt Date: 20061212
  Transmission Date: 20110219
  Serious: Yes (Other)
  Sender: FDA-Public Use
  Company Number: US-PFIZER INC-2006130372

PATIENT
  Sex: Female
  Weight: 80.7 kg

DRUGS (2)
  1. CHANTIX [Suspect]
     Indication: SMOKING CESSATION THERAPY
     Route: 048
     Dates: start: 20061022
  2. ZYRTEC [Concomitant]

REACTIONS (14)
  - ACNE [None]
  - AGGRESSION [None]
  - AGITATION [None]
  - BACK PAIN [None]
  - CHILLS [None]
  - DIARRHOEA [None]
  - GINGIVAL DISORDER [None]
  - HOT FLUSH [None]
  - MENTAL IMPAIRMENT [None]
  - MOOD SWINGS [None]
  - MOUTH ULCERATION [None]
  - MYALGIA [None]
  - RESTLESSNESS [None]
  - SINUS HEADACHE [None]
